FAERS Safety Report 4548296-X (Version None)
Quarter: 2005Q1

REPORT INFORMATION
  Report Type: 
  Country: None (occurrence: None)
  Receive Date: 20050110
  Receipt Date: 20041110
  Transmission Date: 20050727
  Serious: Yes (Hospitalization, Other)
  Sender: FDA-Public Use
  Company Number: US-MERCK-0411USA02017

PATIENT
  Age: 60 Year
  Sex: Male
  Weight: 85 kg

DRUGS (8)
  1. ZOCOR [Suspect]
     Indication: BLOOD CHOLESTEROL INCREASED
     Route: 048
     Dates: start: 20041001, end: 20040101
  2. ZOCOR [Suspect]
     Route: 048
     Dates: end: 20041006
  3. ZOCOR [Suspect]
     Route: 048
     Dates: start: 20041007, end: 20041001
  4. PLAVIX [Concomitant]
     Route: 048
  5. LEVOXYL [Concomitant]
     Route: 048
  6. ASPIRIN [Concomitant]
     Route: 048
  7. PROTONIX [Concomitant]
     Route: 048
  8. LOPRESSOR [Concomitant]
     Route: 048

REACTIONS (3)
  - ADVERSE EVENT [None]
  - HAEMATURIA [None]
  - RHABDOMYOLYSIS [None]
